FAERS Safety Report 23887165 (Version 1)
Quarter: 2024Q2

REPORT INFORMATION
  Report Type: Report from Study
  Country: US (occurrence: US)
  Receive Date: 20240523
  Receipt Date: 20240523
  Transmission Date: 20240715
  Serious: Yes (Hospitalization)
  Sender: FDA-Public Use
  Company Number: US-ABBVIE-5764764

PATIENT
  Age: 32 Year
  Sex: Female

DRUGS (2)
  1. RINVOQ [Suspect]
     Active Substance: UPADACITINIB
     Indication: Dermatitis atopic
     Dosage: FORM STRENGTH: 15 MILLIGRAM
     Route: 048
     Dates: start: 20240503
  2. RINVOQ [Suspect]
     Active Substance: UPADACITINIB
     Indication: Dermatitis atopic
     Dosage: FORM STRENGTH: 15 MILLIGRAM?DRUG END DATE--2024
     Route: 048
     Dates: start: 20240417

REACTIONS (5)
  - Gait inability [Unknown]
  - Intervertebral disc protrusion [Unknown]
  - Pelvic misalignment [Unknown]
  - Cartilage injury [Unknown]
  - Back pain [Unknown]

NARRATIVE: CASE EVENT DATE: 20240501
